FAERS Safety Report 8976978 (Version 1)
Quarter: 2012Q4

REPORT INFORMATION
  Report Type: 
  Country: US (occurrence: US)
  Receive Date: 20121220
  Receipt Date: 20121220
  Transmission Date: 20130627
  Serious: No
  Sender: FDA-Public Use
  Company Number: US-GLAXOSMITHKLINE-A0967180A

PATIENT
  Age: 73 Year
  Sex: Male

DRUGS (3)
  1. SORIATANE [Suspect]
     Indication: PSORIASIS
     Dosage: 10MG Twice per day
     Route: 048
  2. SULAR [Concomitant]
  3. OTHER MEDICATIONS [Concomitant]

REACTIONS (2)
  - Paronychia [Unknown]
  - Overdose [Unknown]
